FAERS Safety Report 19895721 (Version 2)
Quarter: 2021Q4

REPORT INFORMATION
  Report Type: Report from Study
  Country: US (occurrence: US)
  Receive Date: 20210929
  Receipt Date: 20211008
  Transmission Date: 20220303
  Serious: Yes (Hospitalization, Other)
  Sender: FDA-Public Use
  Company Number: US-TEVA-2021-US-1956500

PATIENT
  Age: 66 Year
  Sex: Female
  Weight: 93 kg

DRUGS (13)
  1. FLUTICASONE PROPIONATE\SALMETEROL XINAFOATE [Suspect]
     Active Substance: FLUTICASONE PROPIONATE\SALMETEROL XINAFOATE
     Dosage: 0 MILLIGRAM DAILY;
  2. ALBUTEROL [Suspect]
     Active Substance: ALBUTEROL
     Dosage: 0 MILLIGRAM DAILY;
  3. ADVAIR HFA [Suspect]
     Active Substance: FLUTICASONE PROPIONATE\SALMETEROL XINAFOATE
     Indication: Asthma
     Dosage: STANDARD OF CARE
     Route: 055
     Dates: start: 2002
  4. ALLEGRA [Concomitant]
     Active Substance: FEXOFENADINE HYDROCHLORIDE
     Indication: Hypersensitivity
     Dosage: 180 MILLIGRAM DAILY; PRN
     Route: 048
     Dates: start: 2002
  5. CELEBREX [Concomitant]
     Active Substance: CELECOXIB
     Indication: Arthritis
     Dosage: 400 MILLIGRAM DAILY;
     Route: 048
     Dates: start: 2002
  6. LEVOTHYROXINE SODIUM [Concomitant]
     Active Substance: LEVOTHYROXINE SODIUM
     Indication: Hypothyroidism
     Dosage: DAILY
     Route: 048
     Dates: start: 2016
  7. VITAMIN D3 [Concomitant]
     Active Substance: CHOLECALCIFEROL
     Indication: Osteopenia
     Dosage: 200 IU (INTERNATIONAL UNIT) DAILY;
     Route: 048
     Dates: start: 2010
  8. MINERALS\VITAMINS [Concomitant]
     Active Substance: MINERALS\VITAMINS
     Dosage: DAILY
     Route: 048
     Dates: start: 2016
  9. VENTOLIN [Concomitant]
     Active Substance: ALBUTEROL SULFATE
     Indication: Asthma
     Dosage: 2 PUFF Q 4-5 HOURS PRN
     Route: 055
     Dates: start: 20200624
  10. ALENDRONIC ACID [Concomitant]
     Active Substance: ALENDRONIC ACID
     Indication: Osteopenia
     Route: 048
     Dates: start: 2007
  11. ZOLPIDEM [Concomitant]
     Active Substance: ZOLPIDEM TARTRATE
     Indication: Insomnia
     Dosage: DAILY
     Route: 048
     Dates: start: 2019
  12. AMOXICILLIN [Concomitant]
     Active Substance: AMOXICILLIN
     Indication: Prophylaxis
     Dosage: 2000MG AT APPTS
     Route: 048
  13. ELIQUIS [Concomitant]
     Active Substance: APIXABAN
     Dosage: 10 MILLIGRAM DAILY;
     Route: 048
     Dates: start: 20210815

REACTIONS (3)
  - Abdominal pain [Recovered/Resolved]
  - Cholecystitis chronic [Recovered/Resolved]
  - Biliary colic [Unknown]

NARRATIVE: CASE EVENT DATE: 20210729
